FAERS Safety Report 12963976 (Version 1)
Quarter: 2016Q4

REPORT INFORMATION
  Report Type: Report from Study
  Country: BR (occurrence: BR)
  Receive Date: 20161122
  Receipt Date: 20161122
  Transmission Date: 20170207
  Serious: Yes (Other)
  Sender: FDA-Public Use
  Company Number: PHHY2016BR159678

PATIENT
  Sex: Female

DRUGS (2)
  1. EXELON [Suspect]
     Active Substance: RIVASTIGMINE TARTRATE
     Indication: DEMENTIA ALZHEIMER^S TYPE
     Dosage: UNK
     Route: 048
  2. EXELON PATCH [Suspect]
     Active Substance: RIVASTIGMINE
     Indication: PRODUCT USED FOR UNKNOWN INDICATION
     Dosage: 4.6 MG, 5 (CM2)
     Route: 062

REACTIONS (9)
  - Injury [Unknown]
  - Pain [Unknown]
  - Feeling abnormal [Unknown]
  - Feeding disorder [Unknown]
  - Asthenia [Unknown]
  - Abasia [Unknown]
  - Prosopagnosia [Unknown]
  - Weight decreased [Unknown]
  - Wrong technique in product usage process [Unknown]
